FAERS Safety Report 9059793 (Version 1)
Quarter: 2013Q1

REPORT INFORMATION
  Report Type: Spontaneous
  Country: US (occurrence: None)
  Receive Date: 20130206
  Receipt Date: 20130206
  Transmission Date: 20140127
  Serious: No
  Sender: FDA-Public Use
  Company Number: None

PATIENT
  Age: 58 Year
  Sex: Female
  Weight: 80.74 kg

DRUGS (5)
  1. WARFARIN [Suspect]
     Indication: ATRIAL FIBRILLATION
     Route: 048
     Dates: start: 20130114, end: 20130118
  2. SODIUM BICARBONATE [Concomitant]
  3. VALCYTE [Concomitant]
  4. ENOXAPARIN [Concomitant]
  5. AMIODARONE [Concomitant]

REACTIONS (2)
  - Diarrhoea [None]
  - Product substitution issue [None]
